FAERS Safety Report 24373294 (Version 3)
Quarter: 2025Q4

REPORT INFORMATION
  Report Type: Spontaneous
  Country: US (occurrence: US)
  Receive Date: 20240927
  Receipt Date: 20251014
  Transmission Date: 20260117
  Serious: No
  Sender: ROCHE
  Company Number: US-ROCHE-10000090802

PATIENT
  Age: 34 Year
  Sex: Female

DRUGS (2)
  1. DORNASE ALFA [Suspect]
     Active Substance: DORNASE ALFA
     Indication: Empyema
     Route: 065
  2. ALTEPLASE [Suspect]
     Active Substance: ALTEPLASE
     Indication: Empyema
     Route: 034

REACTIONS (4)
  - Maternal exposure during pregnancy [Unknown]
  - Off label use [Unknown]
  - No adverse event [Unknown]
  - Off label use [Unknown]
